FAERS Safety Report 11178378 (Version 1)
Quarter: 2015Q2

REPORT INFORMATION
  Report Type: Spontaneous
  Country: GR (occurrence: GR)
  Receive Date: 20150610
  Receipt Date: 20150610
  Transmission Date: 20150821
  Serious: Yes (Other)
  Sender: FDA-Public Use
  Company Number: GR-GLAXOSMITHKLINE-GR2015GSK078281

PATIENT
  Age: 40 Year
  Sex: Male

DRUGS (1)
  1. ACITRETIN. [Suspect]
     Active Substance: ACITRETIN
     Indication: PSORIASIS
     Dosage: 1 MG/KG, QD
     Route: 048

REACTIONS (6)
  - Joint range of motion decreased [Recovered/Resolved]
  - Sensory disturbance [Recovered/Resolved]
  - Polyneuropathy [Recovered/Resolved]
  - Hypoaesthesia [Recovered/Resolved]
  - Areflexia [Recovered/Resolved]
  - Nervous system disorder [Recovered/Resolved]
